FAERS Safety Report 12130320 (Version 5)
Quarter: 2016Q2

REPORT INFORMATION
  Report Type: Spontaneous
  Country: US (occurrence: US)
  Receive Date: 20160301
  Receipt Date: 20160603
  Transmission Date: 20160815
  Serious: Yes (Other)
  Sender: FDA-Public Use
  Company Number: US-ROCHE-1718674

PATIENT
  Sex: Female

DRUGS (3)
  1. ACTEMRA [Suspect]
     Active Substance: TOCILIZUMAB
     Indication: RHEUMATOID ARTHRITIS
     Dosage: LAST DOSE PRIOR TO EVENT: 15/OCT/2015
     Route: 058
     Dates: start: 20131228
  2. XANAX [Concomitant]
     Active Substance: ALPRAZOLAM
  3. SOMA [Concomitant]
     Active Substance: CARISOPRODOL

REACTIONS (4)
  - Road traffic accident [Unknown]
  - Influenza [Not Recovered/Not Resolved]
  - Drug dose omission [Unknown]
  - Weight decreased [Unknown]
